FAERS Safety Report 20989526 (Version 1)
Quarter: 2022Q2

REPORT INFORMATION
  Report Type: Report from Study
  Country: US (occurrence: US)
  Receive Date: 20220621
  Receipt Date: 20220621
  Transmission Date: 20220721
  Serious: No
  Sender: FDA-Public Use
  Company Number: US-INCYTE CORPORATION-2022IN004748

PATIENT

DRUGS (3)
  1. JAKAFI [Suspect]
     Active Substance: RUXOLITINIB
     Indication: Essential thrombocythaemia
     Dosage: 5 MILLIGRAM, THREE 5MG AM AND TWO 5 MG PM
     Route: 065
  2. JAKAFI [Suspect]
     Active Substance: RUXOLITINIB
     Dosage: 5 MILLIGRAM, BID THREE 5MG AM AND THREE 5MG PM
     Route: 065
  3. JAKAFI [Suspect]
     Active Substance: RUXOLITINIB
     Dosage: ONLY TOOK TWO
     Route: 065
     Dates: start: 20220511

REACTIONS (3)
  - Mobility decreased [Unknown]
  - Off label use [Unknown]
  - Product availability issue [Unknown]
